FAERS Safety Report 7897375-8 (Version None)
Quarter: 2011Q4

REPORT INFORMATION
  Report Type: 
  Country: None (occurrence: None)
  Receive Date: 20111107
  Receipt Date: 20111102
  Transmission Date: 20120403
  Serious: Yes (Other)
  Sender: FDA-Public Use
  Company Number: US-SANOFI-AVENTIS-2011SA071812

PATIENT
  Age: 79 Year
  Sex: Female

DRUGS (4)
  1. MULTAQ [Suspect]
     Indication: ATRIAL FIBRILLATION
     Route: 048
     Dates: start: 20101001
  2. METOPROLOL TARTRATE [Suspect]
     Dosage: 1/4 TABLET DAILY (12.5 MG)
     Route: 048
  3. ATORVASTATIN [Suspect]
     Route: 065
     Dates: end: 20110101
  4. ASPIRIN [Concomitant]

REACTIONS (4)
  - MUSCULOSKELETAL PAIN [None]
  - ATRIAL FIBRILLATION [None]
  - ABDOMINAL PAIN [None]
  - DIZZINESS [None]
